FAERS Safety Report 15418213 (Version 2)
Quarter: 2018Q3

REPORT INFORMATION
  Report Type: Spontaneous
  Country: US (occurrence: US)
  Receive Date: 20180924
  Receipt Date: 20180927
  Transmission Date: 20181010
  Serious: Yes (Other)
  Sender: FDA-Public Use
  Company Number: US-PFIZER INC-2018380942

PATIENT
  Age: 2 Year
  Sex: Female
  Weight: 14.4 kg

DRUGS (1)
  1. VINCRISTINE SULFATE. [Suspect]
     Active Substance: VINCRISTINE SULFATE
     Indication: T-CELL LYMPHOMA
     Dosage: 1.5 MG/M2, WEEKLY
     Route: 042

REACTIONS (2)
  - Paralysis recurrent laryngeal nerve [Recovering/Resolving]
  - Neuropathy peripheral [Unknown]
